FAERS Safety Report 15351924 (Version 1)
Quarter: 2018Q3

REPORT INFORMATION
  Report Type: Spontaneous
  Country: US (occurrence: US)
  Receive Date: 20180905
  Receipt Date: 20180905
  Transmission Date: 20181010
  Serious: No
  Sender: FDA-Public Use
  Company Number: US-IMPAX LABORATORIES, INC-2017-IPXL-02443

PATIENT
  Sex: Female

DRUGS (7)
  1. LYRICA [Concomitant]
     Active Substance: PREGABALIN
     Indication: BACK PAIN
     Dosage: 100 MG, 3 /DAY
     Route: 065
     Dates: start: 201706
  2. COLESTIPOL [Concomitant]
     Active Substance: COLESTIPOL
     Indication: IRRITABLE BOWEL SYNDROME
     Dosage: 1 MG, 2 /DAY (1 IN THE MORNING AND 1 AT THE NIGHT)
     Route: 048
     Dates: start: 2017
  3. LEVOTHYROXINE. [Concomitant]
     Active Substance: LEVOTHYROXINE
     Indication: THYROID DISORDER
     Dosage: 50 ?G, 1 /DAY
     Route: 048
  4. REQUIP [Concomitant]
     Active Substance: ROPINIROLE HYDROCHLORIDE
     Indication: RESTLESS LEGS SYNDROME
     Dosage: 5 MG, 1 /DAY
     Route: 048
     Dates: start: 2009
  5. LAMOTRIGINE ODT [Suspect]
     Active Substance: LAMOTRIGINE
     Indication: BIPOLAR DISORDER
     Dosage: 100 MG, 1 /DAY
     Route: 065
     Dates: start: 2009
  6. XARELTO [Concomitant]
     Active Substance: RIVAROXABAN
     Indication: FACTOR V DEFICIENCY
     Dosage: 20 MG, 1 /DAY
     Route: 048
     Dates: start: 2009
  7. SEROQUEL [Suspect]
     Active Substance: QUETIAPINE FUMARATE
     Indication: BIPOLAR DISORDER
     Dosage: 100 MG, 1 /DAY
     Route: 065
     Dates: start: 2009

REACTIONS (1)
  - Tremor [Unknown]
